FAERS Safety Report 12546052 (Version 2)
Quarter: 2016Q4

REPORT INFORMATION
  Report Type: Spontaneous
  Country: US (occurrence: US)
  Receive Date: 20160711
  Receipt Date: 20161025
  Transmission Date: 20170207
  Serious: No
  Sender: FDA-Public Use
  Company Number: US-JNJFOC-20160701879

PATIENT
  Sex: Male

DRUGS (2)
  1. RISPERDAL [Suspect]
     Active Substance: RISPERIDONE
     Indication: ATTENTION DEFICIT/HYPERACTIVITY DISORDER
     Dosage: 2 OR 3 MG
     Route: 048
     Dates: start: 200902, end: 201403
  2. RISPERDAL [Suspect]
     Active Substance: RISPERIDONE
     Indication: BIPOLAR DISORDER
     Dosage: 2 OR 3 MG
     Route: 048
     Dates: start: 200902, end: 201403

REACTIONS (5)
  - Abnormal weight gain [Unknown]
  - Gynaecomastia [Unknown]
  - Anxiety [Unknown]
  - Hyperglycaemia [Unknown]
  - Emotional distress [Unknown]

NARRATIVE: CASE EVENT DATE: 2013
